FAERS Safety Report 22271247 (Version 1)
Quarter: 2023Q2

REPORT INFORMATION
  Report Type: Report from Study
  Country: US (occurrence: US)
  Receive Date: 20230501
  Receipt Date: 20230501
  Transmission Date: 20230721
  Serious: Yes (Hospitalization)
  Sender: FDA-Public Use
  Company Number: US-OTSUKA-2020_007096AA

PATIENT
  Age: 69 Year
  Sex: Female
  Weight: 59 kg

DRUGS (14)
  1. CEDAZURIDINE\DECITABINE [Suspect]
     Active Substance: CEDAZURIDINE\DECITABINE
     Indication: Myelodysplastic syndrome
     Dosage: 120 MG (100 MG CEDAZURIDINE + 20 MG DECITABINE) QD DAYS 1-5 IN A 28-DAY CYCLE
     Route: 048
     Dates: start: 20200224
  2. LEVOTHYROXINE [Concomitant]
     Active Substance: LEVOTHYROXINE
     Indication: Product used for unknown indication
     Dosage: 8 MG, QD
     Route: 048
     Dates: start: 2009
  3. JADENU [Concomitant]
     Active Substance: DEFERASIROX
     Indication: Blood iron increased
     Dosage: 900 MG, QD
     Route: 002
     Dates: start: 20200101
  4. SENNA [Concomitant]
     Active Substance: SENNA LEAF\SENNOSIDES\SENNOSIDES A AND B
     Indication: Constipation
     Dosage: 8.6 MG, UNK (PRN)
     Route: 002
     Dates: start: 20180101
  5. ALKA-SELTZER PLUS SEVERE COLD AND FLU FORMULA [Concomitant]
     Active Substance: ACETAMINOPHEN\CHLORPHENIRAMINE\DEXTROMETHORPHAN\PHENYLEPHRINE
     Indication: Cough
     Dosage: UNK
     Route: 002
     Dates: start: 20200305, end: 20200307
  6. ACETAMINOPHEN [Concomitant]
     Active Substance: ACETAMINOPHEN
     Indication: Pyrexia
     Dosage: UNK
     Route: 002
     Dates: start: 20200306, end: 20200308
  7. ONDANSETRON [Concomitant]
     Active Substance: ONDANSETRON
     Indication: Nausea
     Dosage: UNK
     Route: 002
     Dates: start: 20180101
  8. ASPIRIN [Concomitant]
     Active Substance: ASPIRIN
     Indication: Prophylaxis
     Dosage: UNK
     Route: 002
     Dates: start: 20160101
  9. LEVOTHYROXINE [Concomitant]
     Active Substance: LEVOTHYROXINE
     Indication: Hypothyroidism
     Dosage: UNK
     Route: 002
     Dates: start: 20050101
  10. LEVOTHYROXINE [Concomitant]
     Active Substance: LEVOTHYROXINE
     Indication: Prophylaxis
  11. ACETAMINOPHEN [Concomitant]
     Active Substance: ACETAMINOPHEN
     Indication: Arthralgia
     Dosage: UNK
     Route: 002
     Dates: start: 20180101
  12. EFFEXOR [Concomitant]
     Active Substance: VENLAFAXINE HYDROCHLORIDE
     Indication: Anxiety
     Dosage: UNK
     Route: 002
     Dates: start: 20150101
  13. MUCINEX [Concomitant]
     Active Substance: GUAIFENESIN
     Indication: Cough
     Dosage: UNK
     Route: 002
     Dates: start: 20200305, end: 20200307
  14. TYLENOL [Concomitant]
     Active Substance: ACETAMINOPHEN
     Indication: Pyrexia
     Dosage: UNK
     Route: 002
     Dates: start: 20200306, end: 20200308

REACTIONS (1)
  - Moraxella infection [Recovered/Resolved]

NARRATIVE: CASE EVENT DATE: 20200310
